FAERS Safety Report 4818549-6 (Version None)
Quarter: 2005Q4

REPORT INFORMATION
  Report Type: 
  Country: None (occurrence: None)
  Receive Date: 20051031
  Receipt Date: 20051018
  Transmission Date: 20060501
  Serious: Yes (Hospitalization, Other)
  Sender: FDA-Public Use
  Company Number: 2005130296

PATIENT
  Age: 53 Year
  Sex: Female
  Weight: 97.5234 kg

DRUGS (5)
  1. DETROL LA [Suspect]
     Indication: HYPERTONIC BLADDER
     Dosage: 4 MG (4 MG, 1 IN 1 D)
     Dates: start: 20050901, end: 20050901
  2. DETROL LA [Suspect]
     Indication: POLLAKIURIA
     Dosage: 4 MG (4 MG, 1 IN 1 D)
     Dates: start: 20050901, end: 20050901
  3. ACETYLSALICYLIC ACID SRT [Concomitant]
  4. MULTIVITAMIN [Concomitant]
  5. CALCIUM WITH VITAMIN D (CALCIUM PHOSPHATE CALCIUM SODIUM LACTATE, ERGO [Concomitant]

REACTIONS (11)
  - CELLULITIS [None]
  - ERYTHEMA [None]
  - EYE SWELLING [None]
  - FACE OEDEMA [None]
  - NECK PAIN [None]
  - RHINALGIA [None]
  - RHINITIS [None]
  - SINUS HEADACHE [None]
  - SINUSITIS [None]
  - SWELLING [None]
  - VISION BLURRED [None]
